FAERS Safety Report 5868388-2 (Version None)
Quarter: 2008Q3

REPORT INFORMATION
  Report Type: 
  Country: None (occurrence: None)
  Receive Date: 20080831
  Receipt Date: 20080831
  Transmission Date: 20090109
  Serious: Yes (Death)
  Sender: FDA-Public Use
  Company Number: None

PATIENT
  Age: 67 Year
  Sex: Female
  Weight: 58.9676 kg

DRUGS (1)
  1. PROAIR HFA [Suspect]
     Indication: DYSPNOEA
     Dosage: 1 PUFF 4 X DAILY PO
     Route: 048

REACTIONS (3)
  - BRONCHOSPASM PARADOXICAL [None]
  - MYOCARDIAL INFARCTION [None]
  - WHEEZING [None]
